FAERS Safety Report 10480799 (Version 1)
Quarter: 2014Q3

REPORT INFORMATION
  Report Type: Other
  Country: GB (occurrence: GB)
  Receive Date: 20140929
  Receipt Date: 20140929
  Transmission Date: 20150326
  Serious: Yes (Other)
  Sender: FDA-Public Use
  Company Number: GB-SUN PHARMACEUTICAL INDUSTRIES LTD-2014SUN02159

PATIENT

DRUGS (11)
  1. CLOPIDOGREL [Concomitant]
     Active Substance: CLOPIDOGREL BISULFATE
  2. ATORVASTATIN [Concomitant]
     Active Substance: ATORVASTATIN
  3. SULPHASALAZINE [Concomitant]
     Active Substance: SULFASALAZINE
     Indication: ILL-DEFINED DISORDER
  4. ZOLEDRONIC ACID [Suspect]
     Active Substance: ZOLEDRONIC ACID
     Indication: PROPHYLAXIS
     Dosage: 5 MG, 1DOSE/1YEAR
     Route: 042
     Dates: start: 201312, end: 201407
  5. ESOMEPRAZOLE [Concomitant]
     Active Substance: ESOMEPRAZOLE
  6. PREDNISOLONE. [Concomitant]
     Active Substance: PREDNISOLONE
  7. GLYCERYL TRINITRATE [Concomitant]
     Active Substance: NITROGLYCERIN
  8. STRONTIUM RANELATE [Concomitant]
     Active Substance: STRONTIUM RANELATE
     Dosage: NOW CONTRAINDICATED
  9. ALENDRONIC ACID [Suspect]
     Active Substance: ALENDRONIC ACID
     Indication: PROPHYLAXIS
     Route: 048
     Dates: start: 2000, end: 201212
  10. BISOPROLOL [Concomitant]
     Active Substance: BISOPROLOL
  11. RAMIPRIL. [Concomitant]
     Active Substance: RAMIPRIL

REACTIONS (5)
  - Pain in extremity [Not Recovered/Not Resolved]
  - Atypical femur fracture [Not Recovered/Not Resolved]
  - Muscular weakness [Unknown]
  - Stress fracture [Not Recovered/Not Resolved]
  - Contraindication to medical treatment [Unknown]

NARRATIVE: CASE EVENT DATE: 201107
